FAERS Safety Report 25565268 (Version 5)
Quarter: 2025Q4

REPORT INFORMATION
  Report Type: Spontaneous
  Country: US (occurrence: US)
  Receive Date: 20250716
  Receipt Date: 20251010
  Transmission Date: 20260118
  Serious: Yes (Life-Threatening, Hospitalization, Other)
  Sender: SANOFI AVENTIS
  Company Number: US-SA-2025SA199358

PATIENT
  Age: 79 Year
  Sex: Male
  Weight: 74.83 kg

DRUGS (1)
  1. CERDELGA [Suspect]
     Active Substance: ELIGLUSTAT
     Indication: Gaucher^s disease
     Dosage: 84 MG, BID
     Route: 048
     Dates: start: 202409

REACTIONS (8)
  - Septic shock [Recovering/Resolving]
  - Atrial fibrillation [Recovering/Resolving]
  - Gallbladder obstruction [Unknown]
  - Cholecystitis infective [Unknown]
  - Cholelithiasis [Unknown]
  - Organ failure [Unknown]
  - Weight decreased [Unknown]
  - Transfusion [Recovering/Resolving]

NARRATIVE: CASE EVENT DATE: 20250601
